FAERS Safety Report 17401960 (Version 1)
Quarter: 2020Q1

REPORT INFORMATION
  Report Type: Spontaneous
  Country: US (occurrence: US)
  Receive Date: 20200127
  Receipt Date: 20200127
  Transmission Date: 20200409
  Serious: Yes (Other)
  Sender: FDA-Public Use
  Company Number: None

PATIENT
  Age: 28 Year
  Sex: Female
  Weight: 47.17 kg

DRUGS (1)
  1. FLUDROCORTISONE ACETATE. [Suspect]
     Active Substance: FLUDROCORTISONE ACETATE
     Indication: SINUS TACHYCARDIA
     Dosage: ?          QUANTITY:30 PILLS;OTHER FREQUENCY:1 TABLET DAILY;?
     Route: 048
     Dates: start: 20170404

REACTIONS (2)
  - Amenorrhoea [None]
  - Weight decreased [None]
